FAERS Safety Report 5411327-9 (Version None)
Quarter: 2007Q3

REPORT INFORMATION
  Report Type: 
  Country: None (occurrence: None)
  Receive Date: 20070810
  Receipt Date: 20070802
  Transmission Date: 20080115
  Serious: Yes (Death)
  Sender: FDA-Public Use
  Company Number: IN-BRISTOL-MYERS SQUIBB COMPANY-13871595

PATIENT
  Age: 39 Year
  Sex: Female

DRUGS (1)
  1. SPRYCEL [Suspect]
     Route: 048
     Dates: start: 20070417, end: 20070706

REACTIONS (2)
  - RENAL FAILURE ACUTE [None]
  - SEPTIC SHOCK [None]
